FAERS Safety Report 9397222 (Version 1)
Quarter: 2013Q3

REPORT INFORMATION
  Report Type: Spontaneous
  Country: US (occurrence: US)
  Receive Date: 20130712
  Receipt Date: 20130712
  Transmission Date: 20140515
  Serious: No
  Sender: FDA-Public Use
  Company Number: US-GLAXOSMITHKLINE-A1022798A

PATIENT
  Age: 74 Year
  Sex: Male

DRUGS (3)
  1. JALYN [Suspect]
     Indication: MICTURITION DISORDER
     Dosage: 1CAP IN THE MORNING
     Route: 048
     Dates: start: 20121101
  2. UNKNOWN MEDICATION [Concomitant]
     Indication: BLOOD CHOLESTEROL
  3. BLOOD PRESSURE MEDICATION [Concomitant]

REACTIONS (1)
  - Drug ineffective [Not Recovered/Not Resolved]
